FAERS Safety Report 5844491-8 (Version None)
Quarter: 2008Q3

REPORT INFORMATION
  Report Type: 
  Country: None (occurrence: None)
  Receive Date: 20080811
  Receipt Date: 20080728
  Transmission Date: 20090109
  Serious: Yes (Death, Hospitalization)
  Sender: FDA-Public Use
  Company Number: CHTZ20080001

PATIENT
  Age: 88 Year
  Sex: Female

DRUGS (7)
  1. ECAZIDE (CAPTOPRIL W/ HCTZ) [Suspect]
     Indication: DRUG USE FOR UNKNOWN INDICATION
  2. AMIODARONE HYDROCHLORIDE [Suspect]
     Dosage: DAILY, PER ORAL
     Route: 048
     Dates: start: 20050801, end: 20080613
  3. PREVISCAN (FLUINDIONE) [Suspect]
     Indication: DRUG USE FOR UNKNOWN INDICATION
     Dates: start: 20080616
  4. LEVOTHYROXINE SODIUM [Suspect]
     Indication: DRUG USE FOR UNKNOWN INDICATION
  5. IMOVANE (ZIPICLONE) [Suspect]
     Indication: DRUG USE FOR UNKNOWN INDICATION
  6. XALATAN [Suspect]
     Indication: DRUG USE FOR UNKNOWN INDICATION
  7. HYPERIUM (RILMENIDINE) [Suspect]
     Indication: DRUG USE FOR UNKNOWN INDICATION
     Dosage: 1 MG,

REACTIONS (6)
  - BRONCHIECTASIS [None]
  - INFLAMMATION [None]
  - INTERNATIONAL NORMALISED RATIO INCREASED [None]
  - LUNG DISORDER [None]
  - OVERDOSE [None]
  - RESPIRATORY FAILURE [None]
